FAERS Safety Report 20628652 (Version 1)
Quarter: 2022Q1

REPORT INFORMATION
  Report Type: Report from Study
  Country: US (occurrence: US)
  Receive Date: 20220323
  Receipt Date: 20220323
  Transmission Date: 20220424
  Serious: Yes (Other)
  Sender: FDA-Public Use
  Company Number: US-TAKEDA-US202033203

PATIENT
  Sex: Female

DRUGS (1)
  1. HUMAN IMMUNOGLOBULIN G [Suspect]
     Active Substance: HUMAN IMMUNOGLOBULIN G
     Indication: Hypogammaglobulinaemia
     Dosage: UNK, UNKNOWN
     Route: 065

REACTIONS (5)
  - Deafness [Not Recovered/Not Resolved]
  - Neoplasm malignant [Unknown]
  - Hearing aid user [Unknown]
  - Fatigue [Unknown]
  - Infusion site pain [Unknown]
